FAERS Safety Report 4797407-X (Version None)
Quarter: 2005Q4

REPORT INFORMATION
  Report Type: 
  Country: None (occurrence: None)
  Receive Date: 20051013
  Receipt Date: 20051005
  Transmission Date: 20060501
  Serious: Yes (Other)
  Sender: FDA-Public Use
  Company Number: PHBS2005BR14689

PATIENT
  Age: 31 Year
  Sex: Female
  Weight: 61 kg

DRUGS (1)
  1. TEGRETOL [Suspect]
     Indication: SYNCOPE
     Dosage: 200 MG/DAY
     Route: 048
     Dates: start: 20050911, end: 20050930

REACTIONS (1)
  - AGEUSIA [None]
